FAERS Safety Report 24234516 (Version 1)
Quarter: 2024Q3

REPORT INFORMATION
  Report Type: Spontaneous
  Country: FR (occurrence: FR)
  Receive Date: 20240821
  Receipt Date: 20240821
  Transmission Date: 20241016
  Serious: Yes (Hospitalization, Other)
  Sender: DR REDDYS
  Company Number: None

PATIENT
  Age: 82 Year
  Sex: Female

DRUGS (3)
  1. DAPTOMYCIN [Suspect]
     Active Substance: DAPTOMYCIN
     Indication: Osteomyelitis
     Route: 042
     Dates: start: 20240706, end: 20240710
  2. TAZOBACTAM [Suspect]
     Active Substance: TAZOBACTAM
     Indication: Osteomyelitis
     Route: 042
     Dates: start: 20240706, end: 20240710
  3. PIPERACILLIN SODIUM [Suspect]
     Active Substance: PIPERACILLIN SODIUM
     Indication: Osteomyelitis
     Dosage: BASE
     Route: 042
     Dates: start: 20240706, end: 20240710

REACTIONS (1)
  - Tubulointerstitial nephritis [Recovering/Resolving]

NARRATIVE: CASE EVENT DATE: 20240715
